FAERS Safety Report 21494132 (Version 4)
Quarter: 2023Q1

REPORT INFORMATION
  Report Type: Report from Study
  Country: US (occurrence: US)
  Receive Date: 20221021
  Receipt Date: 20230322
  Transmission Date: 20230418
  Serious: Yes (Hospitalization, Other)
  Sender: FDA-Public Use
  Company Number: US-TAKEDA-2022TUS060610

PATIENT
  Sex: Female
  Weight: 92.5 kg

DRUGS (38)
  1. HUMAN IMMUNOGLOBULIN G [Suspect]
     Active Substance: HUMAN IMMUNOGLOBULIN G
     Indication: Primary immunodeficiency syndrome
     Dosage: 12 GRAM, 1/WEEK
     Route: 058
     Dates: start: 20220803
  2. HUMAN IMMUNOGLOBULIN G [Suspect]
     Active Substance: HUMAN IMMUNOGLOBULIN G
     Indication: Immunodeficiency common variable
     Dosage: 12 GRAM, 1/WEEK
     Route: 058
     Dates: start: 20220804
  3. DIPHENHYDRAMINE [Concomitant]
     Active Substance: DIPHENHYDRAMINE
  4. LEVEMIR [Concomitant]
     Active Substance: INSULIN DETEMIR
  5. METOPROLOL SUCCINATE [Concomitant]
     Active Substance: METOPROLOL SUCCINATE
  6. CALCIUM ANTACID [Concomitant]
     Active Substance: CALCIUM CARBONATE
  7. ATORVASTATIN CALCIUM [Concomitant]
     Active Substance: ATORVASTATIN CALCIUM
  8. DALIRESP [Concomitant]
     Active Substance: ROFLUMILAST
  9. EPINEPHRINE [Concomitant]
     Active Substance: EPINEPHRINE
  10. TORSEMIDE [Concomitant]
     Active Substance: TORSEMIDE
  11. GABAPENTIN [Concomitant]
     Active Substance: GABAPENTIN
  12. TRELEGY ELLIPTA [Concomitant]
     Active Substance: FLUTICASONE FUROATE\UMECLIDINIUM BROMIDE\VILANTEROL TRIFENATATE
  13. ACETAMINOPHEN [Concomitant]
     Active Substance: ACETAMINOPHEN
  14. NOVOLOG [Concomitant]
     Active Substance: INSULIN ASPART
  15. OXYGEN [Concomitant]
     Active Substance: OXYGEN
  16. NITROGLYCERIN [Concomitant]
     Active Substance: NITROGLYCERIN
  17. IPRATROPIUM [Concomitant]
     Active Substance: IPRATROPIUM
  18. ALBUTEROL [Concomitant]
     Active Substance: ALBUTEROL
  19. PREDNISONE [Concomitant]
     Active Substance: PREDNISONE
  20. JARDIANCE [Concomitant]
     Active Substance: EMPAGLIFLOZIN
  21. ALBUTEROL SULFATE [Concomitant]
     Active Substance: ALBUTEROL SULFATE
  22. POTASSIUM CHLORIDE [Concomitant]
     Active Substance: POTASSIUM CHLORIDE
  23. ASPIRIN [Concomitant]
     Active Substance: ASPIRIN
  24. CETIRIZINE HCL [Concomitant]
     Active Substance: CETIRIZINE HYDROCHLORIDE
  25. CHOLESTYRAMINE [Concomitant]
     Active Substance: CHOLESTYRAMINE
  26. ELIQUIS [Concomitant]
     Active Substance: APIXABAN
  27. TRADJENTA [Concomitant]
     Active Substance: LINAGLIPTIN
  28. PANTOPRAZOLE SODIUM [Concomitant]
     Active Substance: PANTOPRAZOLE SODIUM
  29. CALCITRIOL [Concomitant]
     Active Substance: CALCITRIOL
  30. VITAMIN B [Concomitant]
     Active Substance: VITAMIN B
  31. DILTIAZEM [Concomitant]
     Active Substance: DILTIAZEM
  32. MAGNESIUM [Concomitant]
     Active Substance: MAGNESIUM
  33. OZEMPIC [Concomitant]
     Active Substance: SEMAGLUTIDE
  34. ALBUTEROL SULFATE\IPRATROPIUM BROMIDE [Concomitant]
     Active Substance: ALBUTEROL SULFATE\IPRATROPIUM BROMIDE
  35. ATORVASTATIN [Concomitant]
     Active Substance: ATORVASTATIN
  36. CETIRIZINE [Concomitant]
     Active Substance: CETIRIZINE HYDROCHLORIDE
  37. PANTOPRAZOLE [Concomitant]
     Active Substance: PANTOPRAZOLE
  38. VITAMIN B12 [Concomitant]
     Active Substance: CYANOCOBALAMIN

REACTIONS (8)
  - Pericardial effusion [Unknown]
  - Atrial fibrillation [Unknown]
  - Pneumonia [Unknown]
  - Pleural effusion [Unknown]
  - Infection [Unknown]
  - Infusion site swelling [Unknown]
  - Product dose omission issue [Unknown]
  - Incorrect product administration duration [Unknown]
